FAERS Safety Report 15470664 (Version 1)
Quarter: 2018Q4

REPORT INFORMATION
  Report Type: Spontaneous
  Country: CA (occurrence: CA)
  Receive Date: 20181005
  Receipt Date: 20181005
  Transmission Date: 20190205
  Serious: Yes (Other)
  Sender: FDA-Public Use
  Company Number: CA-NOVOPROD-624524

PATIENT
  Age: 65 Year
  Sex: Female
  Weight: 68 kg

DRUGS (1)
  1. VICTOZA [Suspect]
     Active Substance: LIRAGLUTIDE
     Indication: DIABETES MELLITUS MANAGEMENT
     Dosage: 7.20 MG, QD
     Route: 058

REACTIONS (4)
  - Myalgia [Recovered/Resolved]
  - Tachycardia [Recovered/Resolved]
  - Musculoskeletal stiffness [Recovered/Resolved]
  - Mobility decreased [Recovered/Resolved]
